FAERS Safety Report 4597340-2 (Version None)
Quarter: 2005Q1

REPORT INFORMATION
  Report Type: 
  Country: None (occurrence: None)
  Receive Date: 20050228
  Receipt Date: 20050228
  Transmission Date: 20050727
  Serious: Yes (Hospitalization)
  Sender: FDA-Public Use
  Company Number: None

PATIENT
  Age: 56 Year
  Sex: Male
  Weight: 61.8 kg

DRUGS (1)
  1. CEFEPIME IV [Suspect]
     Indication: POSTOPERATIVE INFECTION
     Dosage: CEFEPIME 2GM IVPB ONCE
     Dates: start: 20050106

REACTIONS (6)
  - BLOOD PRESSURE DECREASED [None]
  - HEART RATE INCREASED [None]
  - OXYGEN SATURATION DECREASED [None]
  - PRURITUS [None]
  - SWELLING FACE [None]
  - SWOLLEN TONGUE [None]
